FAERS Safety Report 25778703 (Version 3)
Quarter: 2025Q3

REPORT INFORMATION
  Report Type: Spontaneous
  Country: EG (occurrence: EG)
  Receive Date: 20250909
  Receipt Date: 20250912
  Transmission Date: 20251021
  Serious: No
  Sender: PFIZER
  Company Number: EG-PFIZER INC-PV202500107025

PATIENT
  Sex: Female

DRUGS (1)
  1. CLINDAMYCIN PHOSPHATE [Suspect]
     Active Substance: CLINDAMYCIN PHOSPHATE

REACTIONS (2)
  - Application site pain [Unknown]
  - Poor quality device used [Unknown]
